FAERS Safety Report 5142956-8 (Version None)
Quarter: 2006Q4

REPORT INFORMATION
  Report Type: 
  Country: None (occurrence: None)
  Receive Date: 20061103
  Receipt Date: 20061025
  Transmission Date: 20070319
  Serious: Yes (Other)
  Sender: FDA-Public Use
  Company Number: DE-JNJFOC-20060905668

PATIENT
  Sex: Female

DRUGS (1)
  1. REMICADE [Suspect]
     Indication: TAKAYASU'S ARTERITIS
     Dosage: 3 INFUSIONS
     Route: 042

REACTIONS (3)
  - CONVULSION [None]
  - EMBOLISM [None]
  - OFF LABEL USE [None]
